FAERS Safety Report 23060369 (Version 1)
Quarter: 2023Q4

REPORT INFORMATION
  Report Type: Spontaneous
  Country: KE (occurrence: None)
  Receive Date: 20231012
  Receipt Date: 20231012
  Transmission Date: 20240109
  Serious: Yes (Other)
  Sender: FDA-Public Use
  Company Number: 2023A229051

PATIENT
  Age: 16217 Day
  Sex: Female

DRUGS (3)
  1. FASLODEX [Suspect]
     Active Substance: FULVESTRANT
     Indication: Breast cancer
     Dosage: 500.0MG AS REQUIRED
     Route: 030
     Dates: start: 20230406
  2. GOSERELIN [Suspect]
     Active Substance: GOSERELIN
     Indication: Therapeutic ovarian suppression
     Route: 058
  3. PALBOCICLIB [Suspect]
     Active Substance: PALBOCICLIB

REACTIONS (3)
  - Malignant neoplasm progression [Unknown]
  - Ear pain [Unknown]
  - Neck pain [Unknown]

NARRATIVE: CASE EVENT DATE: 20231001
